FAERS Safety Report 6866924-0 (Version None)
Quarter: 2010Q3

REPORT INFORMATION
  Report Type: 
  Country: None (occurrence: None)
  Receive Date: 20100722
  Receipt Date: 20100722
  Transmission Date: 20110219
  Serious: Yes (Disabling)
  Sender: FDA-Public Use
  Company Number: None

PATIENT
  Age: 72 Year
  Sex: Female
  Weight: 79.3795 kg

DRUGS (2)
  1. GABAPENTIN [Suspect]
     Indication: HYPOAESTHESIA
     Dosage: 300 MG DAILY 3 MONTHS ; 600 MG DAILY 3 WKS
     Dates: start: 20091216, end: 20100519
  2. GABAPENTIN [Suspect]
     Indication: HYPOAESTHESIA
     Dosage: 300 MG DAILY 3 MONTHS ; 600 MG DAILY 3 WKS
     Dates: start: 20100519, end: 20100615

REACTIONS (2)
  - DYSGRAPHIA [None]
  - MOTOR DYSFUNCTION [None]
